FAERS Safety Report 8212001-6 (Version None)
Quarter: 2012Q1

REPORT INFORMATION
  Report Type: 
  Country: None (occurrence: None)
  Receive Date: 20120315
  Receipt Date: 20120307
  Transmission Date: 20120608
  Serious: Yes (Other)
  Sender: FDA-Public Use
  Company Number: BE-BAXTER-2012BH004911

PATIENT
  Age: 63 Year
  Sex: Female

DRUGS (3)
  1. REMIFENTANIL [Concomitant]
     Indication: ANAESTHESIA PROCEDURE
     Route: 065
     Dates: start: 20120217, end: 20120217
  2. TISSEEL VH KIT [Suspect]
     Indication: FACE LIFT
     Route: 065
     Dates: start: 20120217, end: 20120217
  3. DIPRIVAN [Concomitant]
     Indication: ANAESTHESIA PROCEDURE
     Route: 065
     Dates: start: 20120217, end: 20120217

REACTIONS (3)
  - HYPERHIDROSIS [None]
  - FEELING HOT [None]
  - HYPOTENSION [None]
